FAERS Safety Report 14391724 (Version 1)
Quarter: 2018Q1

REPORT INFORMATION
  Report Type: Spontaneous
  Country: US (occurrence: US)
  Receive Date: 20180112
  Receipt Date: 20180112
  Transmission Date: 20180509
  Serious: Yes (Hospitalization)
  Sender: FDA-Public Use
  Company Number: None

PATIENT
  Age: 63 Year
  Sex: Male

DRUGS (1)
  1. HUMIRA [Suspect]
     Active Substance: ADALIMUMAB
     Indication: PSORIASIS
     Route: 058
     Dates: start: 20171010, end: 20180111

REACTIONS (4)
  - Influenza [None]
  - Immune system disorder [None]
  - Therapy cessation [None]
  - Bronchitis [None]

NARRATIVE: CASE EVENT DATE: 20180111
